FAERS Safety Report 13838501 (Version 1)
Quarter: 2017Q3

REPORT INFORMATION
  Report Type: Report from Study
  Country: US (occurrence: US)
  Receive Date: 20170807
  Receipt Date: 20170807
  Transmission Date: 20171127
  Serious: Yes (Death)
  Sender: FDA-Public Use
  Company Number: US-ROCHE-1814340

PATIENT
  Age: 71 Year
  Sex: Female

DRUGS (2)
  1. RITUXAN [Suspect]
     Active Substance: RITUXIMAB
     Dosage: SUBSQUENT DOSE ON 14/MAR/2017
     Route: 042
     Dates: start: 20170221
  2. RITUXAN [Suspect]
     Active Substance: RITUXIMAB
     Indication: STIFF PERSON SYNDROME
     Dosage: EVERY 21 DAYS
     Route: 042

REACTIONS (4)
  - Amyotrophic lateral sclerosis [Fatal]
  - Intentional product use issue [Unknown]
  - Off label use [Fatal]
  - Asthenia [Unknown]

NARRATIVE: CASE EVENT DATE: 20170704
